FAERS Safety Report 24298539 (Version 1)
Quarter: 2024Q3

REPORT INFORMATION
  Report Type: Spontaneous
  Country: FR (occurrence: FR)
  Receive Date: 20240909
  Receipt Date: 20240909
  Transmission Date: 20241016
  Serious: Yes (Other)
  Sender: BAYER
  Company Number: None

PATIENT
  Age: 31 Year
  Sex: Female
  Weight: 72 kg

DRUGS (1)
  1. YAZ [Suspect]
     Active Substance: DROSPIRENONE\ETHINYL ESTRADIOL
     Indication: Contraception
     Dosage: 1 DF
     Route: 048
     Dates: start: 20230917, end: 20240801

REACTIONS (6)
  - Depressed mood [Recovering/Resolving]
  - Mood swings [Recovering/Resolving]
  - Pelvic pain [Recovering/Resolving]
  - Rash [Recovering/Resolving]
  - Intermenstrual bleeding [Recovering/Resolving]
  - Suicidal ideation [Recovering/Resolving]

NARRATIVE: CASE EVENT DATE: 20240117
